FAERS Safety Report 14829144 (Version 1)
Quarter: 2018Q2

REPORT INFORMATION
  Report Type: Spontaneous
  Country: IT (occurrence: IT)
  Receive Date: 20180430
  Receipt Date: 20180430
  Transmission Date: 20180711
  Serious: Yes (Hospitalization)
  Sender: FDA-Public Use
  Company Number: IT-BAYER-2017-104034

PATIENT
  Age: 76 Year
  Sex: Female

DRUGS (9)
  1. TRIATEC (RAMIPRIL) [Concomitant]
     Active Substance: RAMIPRIL
  2. CARDICOR [Concomitant]
     Active Substance: BISOPROLOL
  3. PRIMOVIST [Suspect]
     Active Substance: GADOXETATE DISODIUM
     Indication: NUCLEAR MAGNETIC RESONANCE IMAGING ABDOMINAL
     Dosage: 6 ML, ONCE
     Route: 040
     Dates: start: 20170517, end: 20170517
  4. TAVOR (LORAZEPAM) [Concomitant]
     Active Substance: LORAZEPAM
  5. LASIX [Concomitant]
     Active Substance: FUROSEMIDE
  6. FLEBOCORTID [Concomitant]
     Active Substance: HYDROCORTISONE SODIUM SUCCINATE
  7. NORVASC [Concomitant]
     Active Substance: AMLODIPINE BESYLATE
  8. METFORMIN HYDROCHLORIDE. [Concomitant]
     Active Substance: METFORMIN HYDROCHLORIDE
  9. CALCIUM GLUCONATE. [Concomitant]
     Active Substance: CALCIUM GLUCONATE

REACTIONS (9)
  - Urticaria [Recovered/Resolved]
  - Tongue oedema [Unknown]
  - Oral pruritus [Recovered/Resolved]
  - Dysphagia [Recovered/Resolved]
  - Lip oedema [Recovered/Resolved]
  - Throat tightness [Unknown]
  - Dysphonia [Unknown]
  - Laryngeal oedema [Recovered/Resolved]
  - Tongue pruritus [Recovered/Resolved]

NARRATIVE: CASE EVENT DATE: 20170517
